FAERS Safety Report 12507362 (Version 1)
Quarter: 2016Q2

REPORT INFORMATION
  Report Type: Spontaneous
  Country: US (occurrence: None)
  Receive Date: 20160628
  Receipt Date: 20160628
  Transmission Date: 20160815
  Serious: Yes (Death, Hospitalization)
  Sender: FDA-Public Use
  Company Number: None

PATIENT
  Age: 83 Year
  Sex: Male
  Weight: 104 kg

DRUGS (17)
  1. WARFARIN, 1 MG [Suspect]
     Active Substance: WARFARIN
     Indication: PULMONARY EMBOLISM
     Route: 048
  2. PROCHLORPERAZINE (COMPAZINE) [Concomitant]
  3. SPIRONOLACTONE (ALDACTONE) [Concomitant]
  4. LASIX [Concomitant]
     Active Substance: FUROSEMIDE
  5. PROBIOTIC PRODUCT [Concomitant]
  6. MULTIPLE VITAMINS-MINERALS [Concomitant]
  7. METOPROLOL (TOPROL-XL) [Concomitant]
  8. ALLOPURINOL (ZYLOPRIM) [Concomitant]
  9. CHOLECALCIFEROL (VITAMIN D3) [Concomitant]
  10. COENZYME Q10 (COQ10) [Concomitant]
  11. SIMETHICONE (GAS-X) [Concomitant]
  12. ISOSORBIDE MONONITRATE (IMDUR) [Concomitant]
  13. ALTACE [Concomitant]
     Active Substance: RAMIPRIL
  14. VITAMIN B-12 (CYANOCOBALAMIN) [Concomitant]
  15. ASPIRIN. [Concomitant]
     Active Substance: ASPIRIN
  16. COLCHICINE (COLCRYS) [Concomitant]
  17. LOVASTATIN (MEVACOR) [Concomitant]

REACTIONS (7)
  - Pyrexia [None]
  - Fatigue [None]
  - Epigastric discomfort [None]
  - Abdominal discomfort [None]
  - Chest discomfort [None]
  - Gastrointestinal haemorrhage [None]
  - Dyspnoea [None]

NARRATIVE: CASE EVENT DATE: 20160424
